FAERS Safety Report 9289283 (Version 3)
Quarter: 2014Q3

REPORT INFORMATION
  Report Type: Spontaneous
  Country: US (occurrence: US)
  Receive Date: 20130514
  Receipt Date: 20140806
  Transmission Date: 20150326
  Serious: No
  Sender: FDA-Public Use
  Company Number: US-009507513-1305USA008463

PATIENT
  Sex: Male
  Weight: 63.39 kg

DRUGS (1)
  1. PROPECIA [Suspect]
     Active Substance: FINASTERIDE
     Indication: ALOPECIA
     Dosage: 1 MG, QD
     Route: 048
     Dates: start: 20050514, end: 201205

REACTIONS (15)
  - Synovial cyst [Unknown]
  - Arthralgia [Unknown]
  - Haemorrhoidal haemorrhage [Unknown]
  - Chest pain [Unknown]
  - Back pain [Unknown]
  - Lipid metabolism disorder [Unknown]
  - Erectile dysfunction [Not Recovered/Not Resolved]
  - Anxiety [Not Recovered/Not Resolved]
  - Fatigue [Unknown]
  - Acute sinusitis [Unknown]
  - Ligament sprain [Unknown]
  - Insomnia [Unknown]
  - Sexual dysfunction [Not Recovered/Not Resolved]
  - Depression [Not Recovered/Not Resolved]
  - Infertility male [Unknown]

NARRATIVE: CASE EVENT DATE: 20091223
